FAERS Safety Report 4953965-3 (Version None)
Quarter: 2006Q1

REPORT INFORMATION
  Report Type: 
  Country: None (occurrence: None)
  Receive Date: 20060327
  Receipt Date: 20060315
  Transmission Date: 20060701
  Serious: Yes (Hospitalization)
  Sender: FDA-Public Use
  Company Number: US-JNJFOC-20051200051

PATIENT
  Sex: Female
  Weight: 101.61 kg

DRUGS (8)
  1. ORTHO EVRA [Suspect]
     Indication: CONTRACEPTION
     Route: 062
  2. BENTYL [Concomitant]
  3. ZYRTEC [Concomitant]
  4. MIDRIN [Concomitant]
  5. MIDRIN [Concomitant]
  6. MIDRIN [Concomitant]
  7. ZITHROMAX [Concomitant]
     Route: 048
     Dates: start: 20031104, end: 20031109
  8. ZITHROMAX [Concomitant]
     Route: 048
     Dates: start: 20031104, end: 20031109

REACTIONS (5)
  - ANAEMIA [None]
  - PLEURISY [None]
  - PULMONARY EMBOLISM [None]
  - PYELONEPHRITIS [None]
  - STAPHYLOCOCCAL INFECTION [None]
